FAERS Safety Report 8999248 (Version 1)
Quarter: 2013Q1

REPORT INFORMATION
  Report Type: Spontaneous
  Country: US (occurrence: US)
  Receive Date: 20130103
  Receipt Date: 20130103
  Transmission Date: 20140127
  Serious: No
  Sender: FDA-Public Use
  Company Number: US-PFIZER INC-2012331757

PATIENT
  Age: 66 Year
  Sex: Male
  Weight: 145.12 kg

DRUGS (7)
  1. ALAVERT [Suspect]
     Indication: SINUS DISORDER
     Dosage: 10 MG, 1X/DAY
     Route: 048
     Dates: start: 20121226, end: 20121227
  2. ALAVERT [Suspect]
     Indication: PRURITUS
  3. ALAVERT [Suspect]
     Indication: RHINORRHOEA
  4. ALAVERT [Suspect]
     Indication: LACRIMATION INCREASED
  5. VALSARTAN [Concomitant]
     Indication: HYPERTENSION
     Dosage: UNK
  6. MELOXICAM [Concomitant]
     Dosage: 15 MG, UNK
  7. FISH OIL [Concomitant]
     Dosage: UNK

REACTIONS (3)
  - Chest pain [Not Recovered/Not Resolved]
  - Chest discomfort [Not Recovered/Not Resolved]
  - Musculoskeletal pain [Not Recovered/Not Resolved]
